FAERS Safety Report 5896385-X (Version None)
Quarter: 2008Q3

REPORT INFORMATION
  Report Type: 
  Country: None (occurrence: None)
  Receive Date: 20080924
  Receipt Date: 20070607
  Transmission Date: 20090109
  Serious: Yes (Other)
  Sender: FDA-Public Use
  Company Number: US-BAYER-200711530BWH

PATIENT
  Age: 70 Year
  Sex: Female

DRUGS (12)
  1. AVELOX [Suspect]
     Indication: INTRA-OCULAR INJECTION
     Dosage: TOTAL DAILY DOSE: 400 MG  UNIT DOSE: 400 MG
     Route: 048
     Dates: start: 20070508
  2. AVELOX [Suspect]
     Dosage: TOTAL DAILY DOSE: 400 MG  UNIT DOSE: 400 MG
     Route: 048
     Dates: start: 20070216
  3. AVELOX [Suspect]
     Dosage: TOTAL DAILY DOSE: 400 MG  UNIT DOSE: 400 MG
     Route: 048
     Dates: start: 20061117
  4. AVELOX [Suspect]
     Dosage: TOTAL DAILY DOSE: 400 MG  UNIT DOSE: 400 MG
     Route: 048
     Dates: start: 20060922
  5. AVELOX [Suspect]
     Dosage: TOTAL DAILY DOSE: 400 MG  UNIT DOSE: 400 MG
     Route: 048
     Dates: start: 20060811
  6. CALCIUM GLUCONATE [Concomitant]
  7. INDAPAMIDE [Concomitant]
  8. MOBIC [Concomitant]
  9. MULTIVITAMIN (NOS) [Concomitant]
  10. ZESTRIL [Concomitant]
  11. ZOCOR [Concomitant]
  12. ZYMAR [Concomitant]
     Route: 031

REACTIONS (7)
  - DRUG HYPERSENSITIVITY [None]
  - FEELING ABNORMAL [None]
  - PARAESTHESIA [None]
  - RASH GENERALISED [None]
  - RASH MACULAR [None]
  - TONGUE DISORDER [None]
  - URTICARIA [None]
